FAERS Safety Report 9779765 (Version 2)
Quarter: 2014Q1

REPORT INFORMATION
  Report Type: Spontaneous
  Country: US (occurrence: US)
  Receive Date: 20131223
  Receipt Date: 20140211
  Transmission Date: 20141002
  Serious: Yes (Other)
  Sender: FDA-Public Use
  Company Number: US-GLAXOSMITHKLINE-A1054542A

PATIENT
  Age: 64 Year
  Sex: Female
  Weight: 49.5 kg

DRUGS (2)
  1. REQUIP XL [Suspect]
     Indication: PARKINSON^S DISEASE
     Dosage: 12MG UNKNOWN
     Route: 065
     Dates: start: 200908
  2. SINEMET [Concomitant]

REACTIONS (4)
  - Deep brain stimulation [Recovering/Resolving]
  - Somnolence [Recovering/Resolving]
  - Hallucination, visual [Recovering/Resolving]
  - Impulse-control disorder [Recovering/Resolving]
